FAERS Safety Report 21530467 (Version 1)
Quarter: 2022Q4

REPORT INFORMATION
  Report Type: Spontaneous
  Country: CA (occurrence: CA)
  Receive Date: 20221031
  Receipt Date: 20221031
  Transmission Date: 20230112
  Serious: Yes (Other)
  Sender: FDA-Public Use
  Company Number: CA-HALEON-CACH2022AMR041025

PATIENT

DRUGS (2)
  1. ADVIL [Suspect]
     Active Substance: IBUPROFEN
     Indication: Product used for unknown indication
     Dosage: UNK
  2. TECFIDERA [Suspect]
     Active Substance: DIMETHYL FUMARATE
     Indication: Multiple sclerosis
     Dosage: 240 MG, QD (2 EVERY 1 DAY)

REACTIONS (12)
  - Abdominal discomfort [Unknown]
  - Anxiety [Unknown]
  - Crying [Unknown]
  - Decreased appetite [Unknown]
  - Fatigue [Unknown]
  - Flatulence [Unknown]
  - Flushing [Unknown]
  - Frustration tolerance decreased [Unknown]
  - Headache [Unknown]
  - Pancreatitis acute [Unknown]
  - Rash [Unknown]
  - Urinary retention [Unknown]
